FAERS Safety Report 7332921-4 (Version None)
Quarter: 2011Q1

REPORT INFORMATION
  Report Type: 
  Country: None (occurrence: None)
  Receive Date: 20110304
  Receipt Date: 20110224
  Transmission Date: 20110831
  Serious: Yes (Death, Other)
  Sender: FDA-Public Use
  Company Number: US-AMGEN-USASP2011011177

PATIENT
  Age: 97 Year
  Sex: Male

DRUGS (3)
  1. RITUXIMAB [Concomitant]
     Dosage: UNK
     Dates: start: 20070117
  2. IVIGLOB-EX [Concomitant]
     Dosage: UNK
     Dates: start: 20080318
  3. NPLATE [Suspect]
     Indication: MYELODYSPLASTIC SYNDROME
     Dosage: 60 A?G, UNK
     Dates: start: 20081008, end: 20090804

REACTIONS (3)
  - DRUG INEFFECTIVE [None]
  - GENERAL PHYSICAL HEALTH DETERIORATION [None]
  - MYELODYSPLASTIC SYNDROME [None]
